FAERS Safety Report 12663590 (Version 1)
Quarter: 2016Q3

REPORT INFORMATION
  Report Type: Spontaneous
  Country: US (occurrence: None)
  Receive Date: 20160817
  Receipt Date: 20160817
  Transmission Date: 20161109
  Serious: Yes (Other)
  Sender: FDA-Public Use
  Company Number: None

PATIENT
  Sex: Female
  Weight: 102.06 kg

DRUGS (3)
  1. RAYOS [Suspect]
     Active Substance: PREDNISONE
  2. H.P. ACTHAR [Suspect]
     Active Substance: CORTICOTROPIN
     Indication: RHEUMATOID ARTHRITIS
     Route: 058
     Dates: start: 201606
  3. RAYOS [Suspect]
     Active Substance: PREDNISONE
     Route: 048

REACTIONS (1)
  - Adverse drug reaction [None]
